FAERS Safety Report 7247956-X (Version None)
Quarter: 2011Q1

REPORT INFORMATION
  Report Type: 
  Country: None (occurrence: None)
  Receive Date: 20110127
  Receipt Date: 20110120
  Transmission Date: 20110831
  Serious: Yes (Other)
  Sender: FDA-Public Use
  Company Number: US-US-EMD SERONO, INC.-7037418

PATIENT
  Sex: Female

DRUGS (2)
  1. HEPARIN [Concomitant]
     Indication: ANTIPHOSPHOLIPID SYNDROME
  2. REBIF [Suspect]
     Indication: PRODUCT USED FOR UNKNOWN INDICATION
     Route: 058
     Dates: start: 20100524

REACTIONS (3)
  - MONOPLEGIA [None]
  - CENTRAL NERVOUS SYSTEM LESION [None]
  - CEREBRAL THROMBOSIS [None]
